FAERS Safety Report 6211914-4 (Version None)
Quarter: 2009Q2

REPORT INFORMATION
  Report Type: 
  Country: None (occurrence: None)
  Receive Date: 20090602
  Receipt Date: 20090525
  Transmission Date: 20091009
  Serious: Yes (Hospitalization)
  Sender: FDA-Public Use
  Company Number: DE-ABBOTT-09P-062-0575392-00

PATIENT
  Sex: Male
  Weight: 85 kg

DRUGS (14)
  1. ZEMPLAR [Suspect]
     Indication: HYPERPARATHYROIDISM
  2. PROSTESS UNO [Concomitant]
     Indication: BENIGN PROSTATIC HYPERPLASIA
     Dosage: 1 CAPSULE
  3. KARVEA [Concomitant]
     Indication: HYPERTENSION
     Dosage: 1 TABLET
  4. AQUAPHOR [Concomitant]
     Indication: HYPERTENSION
     Dosage: 1 TABLET
  5. TORSEMIDE [Concomitant]
     Indication: HYPERTENSION
     Dosage: IF REQUIRED
  6. LOCOL [Concomitant]
     Indication: HYPERLIPIDAEMIA
     Dosage: 1 TABLET
  7. RAMIPRIL [Concomitant]
     Indication: HYPERTENSION
     Dosage: 1 TABLET
  8. RAMIPRIL [Concomitant]
     Indication: RENAL FAILURE
  9. EZETROL [Concomitant]
     Indication: HYPERLIPIDAEMIA
     Dosage: 1 TABLET
  10. ALLOPURINOL [Concomitant]
     Indication: HYPERURICAEMIA
     Dosage: 1 TABLET
  11. BICANORM [Concomitant]
     Indication: ACIDOSIS
     Dosage: 7 TABLETS PER DAY
  12. AMLODIPINE [Concomitant]
     Indication: HYPERTENSION
     Dosage: PAUSED
  13. ASPIRIN [Concomitant]
     Indication: ANGINA PECTORIS
  14. RENAGEL [Concomitant]
     Indication: HYPERPHOSPHATAEMIA

REACTIONS (2)
  - ANGINA PECTORIS [None]
  - PROSTATE CANCER [None]
